FAERS Safety Report 20713358 (Version 1)
Quarter: 2022Q2

REPORT INFORMATION
  Report Type: Spontaneous
  Country: US (occurrence: None)
  Receive Date: 20220414
  Receipt Date: 20220414
  Transmission Date: 20220721
  Serious: Yes (Hospitalization)
  Sender: FDA-Public Use
  Company Number: None

PATIENT
  Sex: Female

DRUGS (1)
  1. SODIUM CHLORIDE [Suspect]
     Active Substance: SODIUM CHLORIDE
     Indication: Bronchiectasis
     Dosage: 3 ML 2XDAY INHALATION?
     Route: 055
     Dates: start: 20210622

REACTIONS (2)
  - Lung disorder [None]
  - Infection [None]
